FAERS Safety Report 11020443 (Version 2)
Quarter: 2015Q2

REPORT INFORMATION
  Report Type: Spontaneous
  Country: US (occurrence: US)
  Receive Date: 20150413
  Receipt Date: 20150525
  Transmission Date: 20150821
  Serious: Yes (Other)
  Sender: FDA-Public Use
  Company Number: US-JNJFOC-20100804146

PATIENT
  Age: 59 Year
  Sex: Male

DRUGS (8)
  1. LEVAQUIN [Suspect]
     Active Substance: LEVOFLOXACIN
     Indication: SINUSITIS
     Route: 048
     Dates: start: 20080102
  2. LEVAQUIN [Suspect]
     Active Substance: LEVOFLOXACIN
     Indication: SINUSITIS
     Route: 048
     Dates: start: 20041202, end: 20081008
  3. LEVAQUIN [Suspect]
     Active Substance: LEVOFLOXACIN
     Indication: TOOTH INFECTION
     Route: 048
     Dates: start: 20080102
  4. LEVAQUIN [Suspect]
     Active Substance: LEVOFLOXACIN
     Indication: TOOTH INFECTION
     Route: 048
     Dates: start: 20060113
  5. LEVAQUIN [Suspect]
     Active Substance: LEVOFLOXACIN
     Indication: TOOTH INFECTION
     Route: 048
     Dates: start: 20041202, end: 20081008
  6. LEVAQUIN [Suspect]
     Active Substance: LEVOFLOXACIN
     Indication: SINUSITIS
     Route: 048
     Dates: start: 20041202
  7. LEVAQUIN [Suspect]
     Active Substance: LEVOFLOXACIN
     Indication: TOOTH INFECTION
     Route: 048
     Dates: start: 20041202
  8. LEVAQUIN [Suspect]
     Active Substance: LEVOFLOXACIN
     Indication: SINUSITIS
     Route: 048
     Dates: start: 20060113

REACTIONS (3)
  - Musculoskeletal pain [Unknown]
  - Tendon disorder [Unknown]
  - Rotator cuff syndrome [Unknown]

NARRATIVE: CASE EVENT DATE: 200601
